FAERS Safety Report 14668521 (Version 1)
Quarter: 2018Q1

REPORT INFORMATION
  Report Type: Spontaneous
  Country: FR (occurrence: FR)
  Receive Date: 20180322
  Receipt Date: 20180322
  Transmission Date: 20180509
  Serious: Yes (Death, Hospitalization)
  Sender: FDA-Public Use
  Company Number: FR-ADIENNEP-2016AD000102

PATIENT
  Age: 37 Year
  Sex: Female

DRUGS (4)
  1. TEPADINA [Suspect]
     Active Substance: THIOTEPA
     Indication: BONE MARROW CONDITIONING REGIMEN
     Dosage: 1 DOSAGE 5 MG/KG DAILY
     Route: 042
     Dates: start: 20141212, end: 20141212
  2. FLUDARABINE ACTAVIS [Suspect]
     Active Substance: FLUDARABINE PHOSPHATE
     Indication: BONE MARROW CONDITIONING REGIMEN
     Dosage: 1 DOSAGE 40 MG/M2 DAILY
     Route: 042
     Dates: start: 20141213, end: 20141216
  3. ENDOXAN [Suspect]
     Active Substance: CYCLOPHOSPHAMIDE
     Indication: BONE MARROW CONDITIONING REGIMEN
     Dosage: 1 DOSAGE 50 MG/KG DAILY
     Route: 042
     Dates: start: 20141222, end: 20141223
  4. BUSILVEX [Suspect]
     Active Substance: BUSULFAN
     Indication: BONE MARROW CONDITIONING REGIMEN
     Dosage: 1 DOSAGE 100 MG/M2 DAILY
     Route: 042
     Dates: start: 20141213, end: 20141216

REACTIONS (1)
  - Venoocclusive liver disease [Recovered/Resolved]

NARRATIVE: CASE EVENT DATE: 20141230
